FAERS Safety Report 12486652 (Version 2)
Quarter: 2016Q3

REPORT INFORMATION
  Report Type: Spontaneous
  Country: US (occurrence: US)
  Receive Date: 20160621
  Receipt Date: 20160706
  Transmission Date: 20161109
  Serious: Yes (Hospitalization)
  Sender: FDA-Public Use
  Company Number: US-ACTELION-A-NJ2016-137809

PATIENT
  Age: 69 Year
  Sex: Female

DRUGS (2)
  1. ADCIRCA [Concomitant]
     Active Substance: TADALAFIL
  2. VELETRI [Suspect]
     Active Substance: EPOPROSTENOL
     Indication: PULMONARY ARTERIAL HYPERTENSION
     Dosage: 18.5 NG/KG, PER MIN
     Route: 042
     Dates: start: 20141028

REACTIONS (4)
  - Device related infection [Unknown]
  - Staphylococcal infection [Unknown]
  - Pyrexia [Unknown]
  - Fatigue [Unknown]
